FAERS Safety Report 6298001-4 (Version None)
Quarter: 2009Q3

REPORT INFORMATION
  Report Type: 
  Country: None (occurrence: None)
  Receive Date: 20090805
  Receipt Date: 20090730
  Transmission Date: 20100115
  Serious: Yes (Other)
  Sender: FDA-Public Use
  Company Number: B0587257A

PATIENT
  Age: 24 Year
  Sex: Female

DRUGS (1)
  1. RELENZA [Suspect]
     Indication: DRUG USE FOR UNKNOWN INDICATION

REACTIONS (2)
  - ABORTION SPONTANEOUS [None]
  - DRUG EXPOSURE DURING PREGNANCY [None]
